FAERS Safety Report 9756569 (Version 1)
Quarter: 2013Q4

REPORT INFORMATION
  Report Type: Spontaneous
  Country: US (occurrence: US)
  Receive Date: 20131213
  Receipt Date: 20131213
  Transmission Date: 20140711
  Serious: No
  Sender: FDA-Public Use
  Company Number: US-GLAXOSMITHKLINE-A1046298A

PATIENT
  Sex: Male

DRUGS (2)
  1. NICOTINE PATCH UNKNOWN BRAND [Suspect]
     Indication: PRODUCT USED FOR UNKNOWN INDICATION
     Dates: start: 20131019, end: 20131021
  2. VITAMIN [Concomitant]

REACTIONS (6)
  - Feeling abnormal [Unknown]
  - Sleep disorder [Unknown]
  - Insomnia [Unknown]
  - Feeling abnormal [Unknown]
  - Nonspecific reaction [Unknown]
  - Dizziness [Unknown]
